FAERS Safety Report 7719282-3 (Version None)
Quarter: 2011Q3

REPORT INFORMATION
  Report Type: 
  Country: None (occurrence: None)
  Receive Date: 20110830
  Receipt Date: 20110823
  Transmission Date: 20111222
  Serious: Yes (Hospitalization, Other)
  Sender: FDA-Public Use
  Company Number: US-BAYER-200937765NA

PATIENT
  Age: 47 Year
  Sex: Female

DRUGS (2)
  1. BETASERON [Suspect]
     Indication: MULTIPLE SCLEROSIS
     Dosage: 8 MIU, QOD
     Route: 058
     Dates: start: 20010601, end: 20091201
  2. BETASERON [Suspect]
     Dosage: 8 MIU, QOD
     Route: 058
     Dates: start: 20100530

REACTIONS (9)
  - MUSCLE SPASMS [None]
  - PROCEDURAL PAIN [None]
  - CHEST PAIN [None]
  - BLOOD POTASSIUM DECREASED [None]
  - GAIT DISTURBANCE [None]
  - JOINT LOCK [None]
  - PAIN IN EXTREMITY [None]
  - ARTHRITIS [None]
  - CHONDROPATHY [None]
